FAERS Safety Report 8903241 (Version 6)
Quarter: 2014Q2

REPORT INFORMATION
  Report Type: Spontaneous
  Country: US (occurrence: US)
  Receive Date: 20121112
  Receipt Date: 20140403
  Transmission Date: 20141212
  Serious: Yes (Disabling)
  Sender: FDA-Public Use
  Company Number: US-009507513-1211USA004417

PATIENT
  Sex: Male

DRUGS (1)
  1. PROPECIA [Suspect]
     Indication: ANDROGENETIC ALOPECIA
     Dosage: 1 MG, QD
     Route: 048
     Dates: start: 2003, end: 201201

REACTIONS (23)
  - Anxiety [Not Recovered/Not Resolved]
  - Sexual dysfunction [Unknown]
  - Alopecia [Not Recovered/Not Resolved]
  - Alopecia [Unknown]
  - Blood testosterone decreased [Unknown]
  - Asthenia [Unknown]
  - Feeling abnormal [Unknown]
  - Hyperlipidaemia [Unknown]
  - Arthralgia [Unknown]
  - Hepatic steatosis [Unknown]
  - Dermatophytosis [Unknown]
  - Obesity [Unknown]
  - Hypothyroidism [Unknown]
  - Hypogonadism [Unknown]
  - Wheezing [Unknown]
  - Productive cough [Unknown]
  - Dysphonia [Unknown]
  - Rhinitis [Unknown]
  - Dyspnoea [Unknown]
  - Oropharyngeal pain [Unknown]
  - Underdose [Unknown]
  - Loss of libido [Unknown]
  - Erectile dysfunction [Unknown]
